FAERS Safety Report 5653808-9 (Version None)
Quarter: 2008Q1

REPORT INFORMATION
  Report Type: 
  Country: None (occurrence: None)
  Receive Date: 20080206
  Receipt Date: 20061214
  Transmission Date: 20080703
  Serious: Yes (Other)
  Sender: FDA-Public Use
  Company Number: US200612002643

PATIENT
  Sex: Female

DRUGS (3)
  1. EVISTA [Suspect]
     Indication: OSTEOPOROSIS
     Dosage: ORAL
     Route: 048
     Dates: start: 20060501, end: 20060101
  2. CALCIUM CARBONATE (CALCIUM CARBONATE) [Concomitant]
  3. DELTALIN (ERGOCALCIFEROL) [Concomitant]

REACTIONS (2)
  - HAEMORRHOIDS [None]
  - PAIN [None]
